FAERS Safety Report 19099902 (Version 1)
Quarter: 2021Q2

REPORT INFORMATION
  Report Type: Report from Study
  Country: DE (occurrence: DE)
  Receive Date: 20210406
  Receipt Date: 20210406
  Transmission Date: 20210717
  Serious: Yes (Hospitalization, Other)
  Sender: FDA-Public Use
  Company Number: DE-BRISTOL-MYERS SQUIBB COMPANY-BMS-2020-033929

PATIENT
  Age: 52 Year
  Sex: Female

DRUGS (3)
  1. DEXPANTHENOL. [Concomitant]
     Active Substance: DEXPANTHENOL
     Indication: PRODUCT USED FOR UNKNOWN INDICATION
     Dosage: UNK
     Route: 065
  2. SILICONE [DIMETICONE] [Concomitant]
     Indication: PRODUCT USED FOR UNKNOWN INDICATION
     Dosage: UNK
     Route: 065
  3. NIVOLUMAB [Suspect]
     Active Substance: NIVOLUMAB
     Indication: MALIGNANT MELANOMA
     Dosage: 480 MILLIGRAM, Q4WK
     Route: 042
     Dates: start: 20200116

REACTIONS (12)
  - Wound complication [Recovering/Resolving]
  - Arthralgia [Recovering/Resolving]
  - Dry mouth [Recovering/Resolving]
  - Abdominal pain upper [Recovering/Resolving]
  - Colitis [Recovering/Resolving]
  - Stomatitis [Recovered/Resolved]
  - Type 3 diabetes mellitus [Recovering/Resolving]
  - Skin hyperpigmentation [Recovering/Resolving]
  - Joint range of motion decreased [Recovering/Resolving]
  - Dermatitis bullous [Recovering/Resolving]
  - Seroma [Not Recovered/Not Resolved]
  - Paraesthesia [Recovering/Resolving]

NARRATIVE: CASE EVENT DATE: 20200116
